FAERS Safety Report 22743375 (Version 8)
Quarter: 2023Q4

REPORT INFORMATION
  Report Type: Spontaneous
  Country: US (occurrence: US)
  Receive Date: 20230724
  Receipt Date: 20231122
  Transmission Date: 20240109
  Serious: No
  Sender: FDA-Public Use
  Company Number: US-PFIZER INC-PV202300125402

PATIENT
  Age: 14 Year
  Sex: Male

DRUGS (1)
  1. GENOTROPIN [Suspect]
     Active Substance: SOMATROPIN
     Dosage: 1.6 MG

REACTIONS (6)
  - Device use issue [Unknown]
  - Poor quality device used [Unknown]
  - Needle issue [Unknown]
  - Device mechanical issue [Unknown]
  - Injection site discharge [Unknown]
  - Incorrect dose administered [Unknown]
